FAERS Safety Report 6157455-4 (Version None)
Quarter: 2009Q2

REPORT INFORMATION
  Report Type: 
  Country: None (occurrence: None)
  Receive Date: 20090416
  Receipt Date: 20090406
  Transmission Date: 20091009
  Serious: Yes (Hospitalization)
  Sender: FDA-Public Use
  Company Number: JP-PFIZER INC-2009193550

PATIENT

DRUGS (2)
  1. SUNITINIB MALATE [Suspect]
     Indication: BREAST CANCER RECURRENT
     Dosage: 37.5 MG, 1X/DAY
     Route: 048
     Dates: start: 20090318
  2. *CAPECITABINE [Suspect]
     Indication: BREAST CANCER RECURRENT
     Dosage: 1600 MG, 2X/DAY
     Dates: start: 20090318

REACTIONS (2)
  - ANOREXIA [None]
  - HEPATIC FUNCTION ABNORMAL [None]
